FAERS Safety Report 23793194 (Version 1)
Quarter: 2024Q2

REPORT INFORMATION
  Report Type: Spontaneous
  Country: CA (occurrence: CA)
  Receive Date: 20240429
  Receipt Date: 20240429
  Transmission Date: 20240715
  Serious: Yes (Life-Threatening, Hospitalization, Other)
  Sender: FDA-Public Use
  Company Number: CA-ALKEM LABORATORIES LIMITED-TH-ALKEM-2023-03791

PATIENT
  Age: 87 Year
  Sex: Male
  Weight: 80 kg

DRUGS (1)
  1. DABIGATRAN ETEXILATE MESYLATE [Suspect]
     Active Substance: DABIGATRAN ETEXILATE MESYLATE
     Indication: Atrial fibrillation
     Dosage: 110 MILLIGRAM, BID (TWICE DAILY)
     Route: 065

REACTIONS (2)
  - Subarachnoid haemorrhage [Recovered/Resolved]
  - Drug level increased [Recovered/Resolved]
